FAERS Safety Report 23462760 (Version 10)
Quarter: 2024Q2

REPORT INFORMATION
  Report Type: Spontaneous
  Country: CA (occurrence: CA)
  Receive Date: 20240131
  Receipt Date: 20240607
  Transmission Date: 20240715
  Serious: Yes (Other)
  Sender: FDA-Public Use
  Company Number: CA-PFIZER INC-202400023677

PATIENT
  Age: 80 Year
  Sex: Female

DRUGS (7)
  1. ABRILADA [Suspect]
     Active Substance: ADALIMUMAB-AFZB
     Indication: Crohn^s disease
     Dosage: 40 MG, EVERY 2 WEEKS
     Route: 058
     Dates: start: 20220524
  2. ABRILADA [Suspect]
     Active Substance: ADALIMUMAB-AFZB
     Dosage: 40 MG, EVERY 2 WEEKS
     Route: 058
     Dates: start: 20240116
  3. ABRILADA [Suspect]
     Active Substance: ADALIMUMAB-AFZB
     Dosage: 40 MG, EVERY 2 WEEKS
     Route: 058
     Dates: start: 20240319
  4. ABRILADA [Suspect]
     Active Substance: ADALIMUMAB-AFZB
     Dosage: 40 MG, EVERY 2 WEEKS
     Route: 058
     Dates: start: 20240514, end: 202405
  5. COLACE [Concomitant]
     Active Substance: DOCUSATE SODIUM
     Dosage: 1 DF
  6. FERFER [IRON] [Concomitant]
     Dosage: 1 DF
  7. IRON [Concomitant]
     Active Substance: IRON
     Dosage: UNK

REACTIONS (14)
  - Peripheral swelling [Not Recovered/Not Resolved]
  - Haematemesis [Not Recovered/Not Resolved]
  - Skin discolouration [Not Recovered/Not Resolved]
  - Animal bite [Recovered/Resolved]
  - Infected bite [Recovered/Resolved]
  - Osteoarthritis [Not Recovered/Not Resolved]
  - Vomiting [Unknown]
  - Oropharyngeal pain [Not Recovered/Not Resolved]
  - Pharyngitis [Recovered/Resolved]
  - Lymphadenopathy [Not Recovered/Not Resolved]
  - Epistaxis [Recovered/Resolved]
  - Cellulitis [Recovered/Resolved]
  - Pallor [Unknown]
  - Infection [Unknown]

NARRATIVE: CASE EVENT DATE: 20230101
